FAERS Safety Report 16318302 (Version 1)
Quarter: 2019Q2

REPORT INFORMATION
  Report Type: Spontaneous
  Country: RU (occurrence: RU)
  Receive Date: 20190516
  Receipt Date: 20190516
  Transmission Date: 20190711
  Serious: Yes (Life-Threatening, Hospitalization, Other)
  Sender: FDA-Public Use
  Company Number: RU-SUN PHARMACEUTICAL INDUSTRIES LTD-2019R1-208036

PATIENT
  Age: 31 Year
  Sex: Female

DRUGS (1)
  1. LOPERAMIDE [Suspect]
     Active Substance: LOPERAMIDE
     Indication: PRODUCT USED FOR UNKNOWN INDICATION
     Dosage: 20 DOSAGE FORM, QD
     Route: 065

REACTIONS (11)
  - Torsade de pointes [Recovered/Resolved]
  - Syncope [Recovered/Resolved]
  - Sinus disorder [Recovered/Resolved]
  - Drug abuse [Unknown]
  - Cardiac dysfunction [Recovered/Resolved]
  - Electrocardiogram abnormal [Recovered/Resolved]
  - Dizziness [Unknown]
  - Ventricular tachycardia [Recovered/Resolved]
  - Dyspnoea [Unknown]
  - Electrocardiogram QT prolonged [Recovered/Resolved]
  - Heart rate irregular [Recovered/Resolved]
